FAERS Safety Report 13807685 (Version 1)
Quarter: 2017Q3

REPORT INFORMATION
  Report Type: Spontaneous
  Country: PL (occurrence: PL)
  Receive Date: 20170728
  Receipt Date: 20170728
  Transmission Date: 20171127
  Serious: Yes (Other)
  Sender: FDA-Public Use
  Company Number: PL-TEVA-791199ACC

PATIENT
  Age: 69 Year
  Sex: Female
  Weight: 71 kg

DRUGS (3)
  1. FLUOROURACIL. [Suspect]
     Active Substance: FLUOROURACIL
     Indication: COLON CANCER
     Dosage: DOSE: 1600; DOSE UNIT: NOT SPECIFIED
     Route: 042
     Dates: start: 20161216
  2. CALCIUM FOLINATE [Suspect]
     Active Substance: LEUCOVORIN CALCIUM
     Indication: COLON CANCER
     Dosage: DOSE: 160; DOSE UNIT: NOT SPECIFIED
     Route: 042
     Dates: start: 20161216
  3. OXALIPLATIN. [Suspect]
     Active Substance: OXALIPLATIN
     Indication: COLON CANCER
     Dosage: DOSE: 105; DOSE UNIT: NOT SPECIFIED
     Route: 042
     Dates: start: 20161216

REACTIONS (1)
  - Neutropenia [Recovering/Resolving]

NARRATIVE: CASE EVENT DATE: 20170504
